FAERS Safety Report 19907773 (Version 1)
Quarter: 2021Q4

REPORT INFORMATION
  Report Type: Spontaneous
  Country: CN (occurrence: CN)
  Receive Date: 20211001
  Receipt Date: 20211001
  Transmission Date: 20220304
  Serious: Yes (Other)
  Sender: FDA-Public Use
  Company Number: CN-BAXTER-2021BAX023819

PATIENT
  Age: 12 Year
  Sex: Female
  Weight: 61.2 kg

DRUGS (5)
  1. CYCLOPHOSPHAMIDE [Suspect]
     Active Substance: CYCLOPHOSPHAMIDE
     Indication: Acute lymphocytic leukaemia
     Dosage: DILUTED WITH 250ML OF (4:1) GLUCOSE AND SODIUM CHLORIDE INJECTION
     Route: 041
     Dates: start: 20200824, end: 20200824
  2. DEXTROSE\SODIUM CHLORIDE [Suspect]
     Active Substance: DEXTROSE\SODIUM CHLORIDE
     Indication: Medication dilution
     Dosage: USE AS DILUENT FOR ENDOXAN
     Route: 065
     Dates: start: 20200824, end: 20200824
  3. DEXTROSE\SODIUM CHLORIDE [Suspect]
     Active Substance: DEXTROSE\SODIUM CHLORIDE
     Dosage: USE AS DILUENT FOR CYTOSAR
     Route: 041
     Dates: start: 20200824, end: 20200824
  4. MERCAPTOPURINE [Suspect]
     Active Substance: MERCAPTOPURINE
     Indication: Acute lymphocytic leukaemia
     Dosage: DOSAGE FORM: TABLETS.
     Route: 048
     Dates: start: 20200824, end: 20200830
  5. CYTARABINE [Suspect]
     Active Substance: CYTARABINE
     Indication: Acute lymphocytic leukaemia
     Dosage: DILUTED WITH 250ML OF (4:1) GLUCOSE AND SODIUM CHLORIDE INJECTION
     Route: 041
     Dates: start: 20200824, end: 20200826

REACTIONS (1)
  - Myelosuppression [Recovering/Resolving]

NARRATIVE: CASE EVENT DATE: 20200831
